FAERS Safety Report 19744971 (Version 1)
Quarter: 2021Q3

REPORT INFORMATION
  Report Type: Report from Study
  Country: US (occurrence: US)
  Receive Date: 20210825
  Receipt Date: 20210825
  Transmission Date: 20211014
  Serious: Yes (Hospitalization)
  Sender: FDA-Public Use
  Company Number: US-ASTRAZENECA-2021A692634

PATIENT
  Sex: Male

DRUGS (1)
  1. LYNPARZA [Suspect]
     Active Substance: OLAPARIB
     Indication: PROSTATE CANCER
     Route: 048
     Dates: start: 20210702

REACTIONS (8)
  - Disorientation [Unknown]
  - Decubitus ulcer [Unknown]
  - Fatigue [Unknown]
  - Sepsis [Unknown]
  - Asthenia [Unknown]
  - Liver function test increased [Recovering/Resolving]
  - Product dose omission issue [Unknown]
  - Peripheral swelling [Unknown]
